APPROVED DRUG PRODUCT: DEXAMETHASONE SODIUM PHOSPHATE
Active Ingredient: DEXAMETHASONE SODIUM PHOSPHATE
Strength: EQ 4MG PHOSPHATE/ML
Dosage Form/Route: INJECTABLE;INJECTION
Application: A211451 | Product #001
Applicant: HIKMA PHARMACEUTICALS INTERNATIONAL LTD
Approved: Aug 1, 2023 | RLD: No | RS: No | Type: DISCN